FAERS Safety Report 5955258-4 (Version None)
Quarter: 2008Q4

REPORT INFORMATION
  Report Type: 
  Country: None (occurrence: None)
  Receive Date: 20081031
  Receipt Date: 20080709
  Transmission Date: 20090506
  Serious: No
  Sender: FDA-Public Use
  Company Number: 2008PV036085

PATIENT
  Age: 68 Year
  Sex: Female

DRUGS (9)
  1. SYMLIN [Suspect]
     Indication: TYPE 2 DIABETES MELLITUS
     Dosage: 30 MCG; BID;SC, 30 MCG; BID; SC, 45 MCG; BID; SC
     Route: 058
     Dates: start: 20080610, end: 20080601
  2. SYMLIN [Suspect]
     Indication: TYPE 2 DIABETES MELLITUS
     Dosage: 30 MCG; BID;SC, 30 MCG; BID; SC, 45 MCG; BID; SC
     Route: 058
     Dates: start: 20080610, end: 20080601
  3. SYMLIN [Suspect]
     Indication: TYPE 2 DIABETES MELLITUS
     Dosage: 30 MCG; BID;SC, 30 MCG; BID; SC, 45 MCG; BID; SC
     Route: 058
     Dates: start: 20080618, end: 20080704
  4. SYMLIN [Suspect]
     Indication: TYPE 2 DIABETES MELLITUS
     Dosage: 30 MCG; BID;SC, 30 MCG; BID; SC, 45 MCG; BID; SC
     Route: 058
     Dates: start: 20080709
  5. SYMLIN [Suspect]
     Indication: TYPE 2 DIABETES MELLITUS
     Dosage: 10 MCG; BID; SC
     Route: 058
     Dates: start: 20070601, end: 20080609
  6. NOVOLOG MIX 70/30 [Concomitant]
  7. LANTUS [Concomitant]
  8. SYNVISC [Concomitant]
  9. BYETTA [Concomitant]

REACTIONS (1)
  - OEDEMA PERIPHERAL [None]
